FAERS Safety Report 21024926 (Version 1)
Quarter: 2022Q2

REPORT INFORMATION
  Report Type: Spontaneous
  Country: BR (occurrence: BR)
  Receive Date: 20220629
  Receipt Date: 20220629
  Transmission Date: 20220721
  Serious: Yes (Death)
  Sender: FDA-Public Use
  Company Number: BR-TAKEDA-2022TUS043089

PATIENT
  Age: 55 Year
  Sex: Male

DRUGS (1)
  1. FEIBA NF [Suspect]
     Active Substance: ANTI-INHIBITOR COAGULANT COMPLEX
     Indication: Prophylaxis
     Route: 065

REACTIONS (1)
  - Adverse event [Fatal]
